FAERS Safety Report 14197844 (Version 1)
Quarter: 2017Q4

REPORT INFORMATION
  Report Type: Spontaneous
  Country: HU (occurrence: HU)
  Receive Date: 20171117
  Receipt Date: 20171117
  Transmission Date: 20180321
  Serious: Yes (Hospitalization, Other)
  Sender: FDA-Public Use
  Company Number: HU-ROCHE-2023149

PATIENT
  Age: 56 Year
  Sex: Female

DRUGS (1)
  1. ERIVEDGE [Suspect]
     Active Substance: VISMODEGIB
     Indication: BASAL CELL CARCINOMA
     Route: 048

REACTIONS (10)
  - Sepsis [Unknown]
  - Asthenia [Unknown]
  - Colitis [Unknown]
  - Pyrexia [Unknown]
  - Leukocytosis [Unknown]
  - Erysipelas [Unknown]
  - Gangrene [Unknown]
  - C-reactive protein increased [Unknown]
  - Alopecia [Unknown]
  - Mood altered [Unknown]
